FAERS Safety Report 10165865 (Version 1)
Quarter: 2014Q2

REPORT INFORMATION
  Report Type: Spontaneous
  Country: US (occurrence: US)
  Receive Date: 20140510
  Receipt Date: 20140510
  Transmission Date: 20141212
  Serious: No
  Sender: FDA-Public Use
  Company Number: US-BRISTOL-MYERS SQUIBB COMPANY-19953017

PATIENT
  Age: 60 Year
  Sex: Female
  Weight: 126.98 kg

DRUGS (2)
  1. BYDUREON [Suspect]
     Indication: TYPE 2 DIABETES MELLITUS
     Dosage: INJ
     Route: 058
     Dates: start: 20131213
  2. METFORMIN [Concomitant]

REACTIONS (2)
  - Underdose [Unknown]
  - Product quality issue [Unknown]
